FAERS Safety Report 7318006 (Version 3)
Quarter: 2016Q3

REPORT INFORMATION
  Report Type: Spontaneous
  Country: FR (occurrence: FR)
  Receive Date: 20100312
  Receipt Date: 20160819
  Transmission Date: 20161109
  Serious: Yes (Hospitalization)
  Sender: FDA-Public Use
  Company Number: FR-ROCHE-689572

PATIENT
  Age: 73 Year
  Sex: Male

DRUGS (13)
  1. VANCOMYCINE [Suspect]
     Active Substance: VANCOMYCIN
     Indication: ARTHRITIS BACTERIAL
     Route: 042
     Dates: start: 20100114, end: 20100124
  2. GLUCOR [Concomitant]
     Active Substance: ACARBOSE
  3. APROVEL [Concomitant]
     Active Substance: IRBESARTAN
  4. CORTANCYL [Concomitant]
     Active Substance: PREDNISONE
  5. ALFUZOSINE [Concomitant]
     Active Substance: ALFUZOSIN HYDROCHLORIDE
     Dosage: DRUG REPORTED AS ALFUZOCINE
     Route: 065
  6. KARDEGIC [Concomitant]
     Active Substance: ASPIRIN LYSINE
  7. INSULIN [Concomitant]
     Active Substance: INSULIN NOS
  8. BURINEX [Concomitant]
     Active Substance: BUMETANIDE
  9. LYRICA [Concomitant]
     Active Substance: PREGABALIN
  10. LEVEMIR [Concomitant]
     Active Substance: INSULIN DETEMIR
  11. OMEPRAZOLE. [Concomitant]
     Active Substance: OMEPRAZOLE
  12. SIMVASTATINE [Concomitant]
     Active Substance: SIMVASTATIN
  13. ROCEPHINE [Suspect]
     Active Substance: CEFTRIAXONE SODIUM
     Indication: ARTHRITIS BACTERIAL
     Route: 042
     Dates: start: 20100114, end: 20100124

REACTIONS (1)
  - Linear IgA disease [Recovering/Resolving]

NARRATIVE: CASE EVENT DATE: 20100124
